FAERS Safety Report 10149570 (Version 1)
Quarter: 2014Q2

REPORT INFORMATION
  Report Type: Spontaneous
  Country: US (occurrence: None)
  Receive Date: 20140501
  Receipt Date: 20140501
  Transmission Date: 20141212
  Serious: No
  Sender: FDA-Public Use
  Company Number: None

PATIENT
  Age: 70 Year
  Sex: Male

DRUGS (1)
  1. FLOVENT HFA [Suspect]
     Indication: ASTHMA
     Dosage: 2 PUFFS, BID, ORAL
     Route: 048

REACTIONS (4)
  - Condition aggravated [None]
  - Device issue [None]
  - Drug effect decreased [None]
  - Product quality issue [None]
